FAERS Safety Report 6868167-3 (Version None)
Quarter: 2010Q3

REPORT INFORMATION
  Report Type: 
  Country: None (occurrence: None)
  Receive Date: 20100722
  Receipt Date: 20080516
  Transmission Date: 20110219
  Serious: No
  Sender: FDA-Public Use
  Company Number: US-PFIZER INC-2008043486

PATIENT
  Sex: Male
  Weight: 72.7 kg

DRUGS (3)
  1. CHANTIX [Suspect]
     Indication: SMOKING CESSATION THERAPY
     Dates: start: 20080515
  2. OXYCODONE [Concomitant]
  3. WELLBUTRIN [Concomitant]
     Dates: end: 20080101

REACTIONS (2)
  - INSOMNIA [None]
  - PAIN [None]
